FAERS Safety Report 5133497-2 (Version None)
Quarter: 2006Q4

REPORT INFORMATION
  Report Type: 
  Country: None (occurrence: None)
  Receive Date: 20061024
  Receipt Date: 20060928
  Transmission Date: 20070319
  Serious: Yes (Death)
  Sender: FDA-Public Use
  Company Number: PHBS2006CN16344

PATIENT
  Age: 43 Year
  Sex: Male

DRUGS (2)
  1. LOTENSIN [Suspect]
     Indication: LUPUS NEPHRITIS
     Dosage: 10 MG/DAY
     Route: 048
     Dates: start: 20051201, end: 20060601
  2. PREDNISONE TAB [Concomitant]

REACTIONS (7)
  - COUGH [None]
  - DYSPNOEA [None]
  - LARYNGEAL OEDEMA [None]
  - LARYNGEAL STENOSIS [None]
  - NASOPHARYNGITIS [None]
  - OEDEMA [None]
  - TRACHEOSCOPY ABNORMAL [None]
